FAERS Safety Report 13186616 (Version 2)
Quarter: 2017Q2

REPORT INFORMATION
  Report Type: Spontaneous
  Country: FR (occurrence: FR)
  Receive Date: 20170205
  Receipt Date: 20170426
  Transmission Date: 20170830
  Serious: Yes (Hospitalization)
  Sender: FDA-Public Use
  Company Number: FR-BEH-2017077803

PATIENT
  Age: 53 Year
  Sex: Female

DRUGS (6)
  1. PRIVIGEN [Suspect]
     Active Substance: HUMAN IMMUNOGLOBULIN G
     Dosage: 5 G, QD, 5 G VIAL
     Route: 042
     Dates: start: 20170124, end: 20170125
  2. DIASTABOL [Concomitant]
     Active Substance: MIGLITOL
     Dosage: 50 MG, QD
     Route: 065
  3. LUTENYL [Concomitant]
     Active Substance: NOMEGESTROL ACETATE
     Route: 065
  4. PRIVIGEN [Suspect]
     Active Substance: HUMAN IMMUNOGLOBULIN G
     Dosage: 20 G, QD, 20 G VIAL
     Route: 042
     Dates: start: 20170124, end: 20170125
  5. PRIVIGEN [Suspect]
     Active Substance: HUMAN IMMUNOGLOBULIN G
     Indication: AUTONOMIC NEUROPATHY
     Dosage: 20 G, TOT, 2 G/KG, 100 MG/ML
     Route: 042
     Dates: start: 20170123, end: 20170123
  6. INSULIN [Concomitant]
     Active Substance: INSULIN NOS
     Dosage: UNK
     Route: 065

REACTIONS (6)
  - Injection site phlebitis [Recovered/Resolved]
  - Headache [Recovered/Resolved]
  - Injection site induration [Recovered/Resolved]
  - Vessel puncture site inflammation [Recovered/Resolved]
  - Injection site inflammation [Recovered/Resolved]
  - Injection site pain [Recovered/Resolved]

NARRATIVE: CASE EVENT DATE: 20170125
